FAERS Safety Report 10952844 (Version 3)
Quarter: 2016Q1

REPORT INFORMATION
  Report Type: Spontaneous
  Country: US (occurrence: US)
  Receive Date: 20150325
  Receipt Date: 20160126
  Transmission Date: 20160525
  Serious: Yes (Disabling)
  Sender: FDA-Public Use
  Company Number: US-PFIZER INC-2015099010

PATIENT
  Age: 56 Year
  Sex: Female
  Weight: 66 kg

DRUGS (6)
  1. SYNTHROID [Concomitant]
     Active Substance: LEVOTHYROXINE SODIUM
     Dosage: 50 ?G, 1X/DAY
     Route: 048
  2. SOMA [Concomitant]
     Active Substance: CARISOPRODOL
     Dosage: 175 MG, 1X/DAY (AT NIGHT)
  3. FENTANYL. [Concomitant]
     Active Substance: FENTANYL
     Dosage: 12 ?G, CHANGES EVERY 3 DAYS
  4. LYRICA [Suspect]
     Active Substance: PREGABALIN
     Indication: FIBROMYALGIA
     Dosage: 100 MG, 3X/DAY
  5. HYDROCODONE [Concomitant]
     Active Substance: HYDROCODONE
     Dosage: 750/325 MG, AS NEEDED
  6. NAPROXEN. [Concomitant]
     Active Substance: NAPROXEN
     Dosage: 375 MG, 2X/DAY
     Route: 048

REACTIONS (8)
  - Disease progression [Not Recovered/Not Resolved]
  - Fibromyalgia [Not Recovered/Not Resolved]
  - Osteoarthritis [Not Recovered/Not Resolved]
  - Influenza [Recovered/Resolved]
  - Osteoporosis [Not Recovered/Not Resolved]
  - Drug dispensing error [Unknown]
  - Vomiting [Unknown]
  - Malaise [Unknown]

NARRATIVE: CASE EVENT DATE: 201010
